FAERS Safety Report 12632774 (Version 2)
Quarter: 2016Q3

REPORT INFORMATION
  Report Type: Spontaneous
  Country: US (occurrence: US)
  Receive Date: 20160808
  Receipt Date: 20160808
  Transmission Date: 20161109
  Serious: No
  Sender: FDA-Public Use
  Company Number: US-BEH-2015056912

PATIENT
  Sex: Male
  Weight: 120 kg

DRUGS (7)
  1. ACETAMINOPHEN. [Concomitant]
     Active Substance: ACETAMINOPHEN
  2. EPI-PEN AUTOINJECTOR [Concomitant]
  3. HIZENTRA [Suspect]
     Active Substance: HUMAN IMMUNOGLOBULIN G
     Indication: IMMUNODEFICIENCY COMMON VARIABLE
     Route: 058
     Dates: start: 20150806
  4. DIPHENHYDRAMINE. [Concomitant]
     Active Substance: DIPHENHYDRAMINE
  5. MELATONIN [Concomitant]
     Active Substance: MELATONIN
  6. COLON HERBAL CLEANSER [Concomitant]
  7. XOPENEX [Concomitant]
     Active Substance: LEVALBUTEROL HYDROCHLORIDE
     Dosage: 0.31 MG/3 ML VIAL-NEB

REACTIONS (4)
  - Headache [Unknown]
  - Administration site erythema [Unknown]
  - Nausea [Unknown]
  - Swelling [Unknown]
